FAERS Safety Report 24267739 (Version 1)
Quarter: 2024Q3

REPORT INFORMATION
  Report Type: Spontaneous
  Country: US (occurrence: None)
  Receive Date: 20240829
  Receipt Date: 20240829
  Transmission Date: 20241016
  Serious: Yes (unspecified)
  Sender: Public
  Company Number: None

PATIENT
  Age: 66 Year
  Sex: Female
  Weight: 67.5 kg

DRUGS (2)
  1. ZOLEDRONIC ACID [Suspect]
     Active Substance: ZOLEDRONIC ACID
     Indication: Drug therapy
     Dosage: OTHER QUANTITY : 1 INFUSION;?OTHER FREQUENCY : ONCE;?OTHER ROUTE : INFUSION;?
     Route: 050
     Dates: start: 20240807, end: 20240807
  2. ATORVASTATIN [Concomitant]
     Active Substance: ATORVASTATIN

REACTIONS (7)
  - Infusion related reaction [None]
  - Chills [None]
  - Muscle contractions involuntary [None]
  - Neck injury [None]
  - Taste disorder [None]
  - Spinal disorder [None]
  - Eating disorder [None]

NARRATIVE: CASE EVENT DATE: 20240807
